FAERS Safety Report 9246785 (Version 4)
Quarter: 2013Q2

REPORT INFORMATION
  Report Type: Report from Study
  Country: AU (occurrence: AU)
  Receive Date: 20130422
  Receipt Date: 20130523
  Transmission Date: 20140414
  Serious: Yes (Hospitalization)
  Sender: FDA-Public Use
  Company Number: AU-ROCHE-1195414

PATIENT
  Age: 65 Year
  Sex: Male

DRUGS (5)
  1. VEMURAFENIB [Suspect]
     Indication: MALIGNANT MELANOMA
     Dosage: THERAPY INTERRUPTED
     Route: 048
     Dates: start: 20130202
  2. VEMURAFENIB [Suspect]
     Route: 065
     Dates: start: 20130301, end: 20130308
  3. PARACETAMOL [Concomitant]
     Route: 065
     Dates: start: 2009
  4. TARGIN [Concomitant]
     Route: 065
     Dates: start: 20130215
  5. OXYCODONE HYDROCHLORIDE [Concomitant]
     Route: 065
     Dates: start: 20130207

REACTIONS (3)
  - Fatigue [Recovered/Resolved]
  - Abdominal pain upper [Recovered/Resolved]
  - Cellulitis [Recovered/Resolved]
